FAERS Safety Report 4268901-5 (Version None)
Quarter: 2004Q1

REPORT INFORMATION
  Report Type: 
  Country: None (occurrence: None)
  Receive Date: 20040112
  Receipt Date: 20040112
  Transmission Date: 20041129
  Serious: Yes (Life-Threatening)
  Sender: FDA-Public Use
  Company Number: None

PATIENT
  Age: 35 Year
  Sex: Male
  Weight: 86.637 kg

DRUGS (2)
  1. LEVAQUIN [Suspect]
     Indication: DIARRHOEA INFECTIOUS
     Dosage: 500MG 1 TIME PER ORAL
     Route: 048
     Dates: start: 20040106, end: 20040111
  2. PREVACID [Concomitant]

REACTIONS (4)
  - DYSPNOEA [None]
  - SWOLLEN TONGUE [None]
  - THROAT TIGHTNESS [None]
  - TREMOR [None]
